FAERS Safety Report 7764216-9 (Version None)
Quarter: 2011Q3

REPORT INFORMATION
  Report Type: 
  Country: None (occurrence: None)
  Receive Date: 20110916
  Receipt Date: 20110905
  Transmission Date: 20111222
  Serious: Yes (Hospitalization)
  Sender: FDA-Public Use
  Company Number: 1000023167

PATIENT
  Age: 84 Year
  Sex: Male

DRUGS (3)
  1. MEMANTINE [Suspect]
     Indication: DEMENTIA ALZHEIMER'S TYPE
     Dosage: 10 (10 MG, 1 IN 1 D), ORAL
     Route: 048
     Dates: start: 20110805, end: 20110807
  2. DOGMATYL (SULPIRIDE) [Concomitant]
  3. ZOLPIDEM TARTRATE [Concomitant]

REACTIONS (9)
  - DEHYDRATION [None]
  - ASPARTATE AMINOTRANSFERASE INCREASED [None]
  - HICCUPS [None]
  - RENAL IMPAIRMENT [None]
  - BLOOD CREATINE PHOSPHOKINASE INCREASED [None]
  - MALAISE [None]
  - DECREASED APPETITE [None]
  - DIZZINESS [None]
  - BLOOD SODIUM DECREASED [None]
